FAERS Safety Report 11452305 (Version 1)
Quarter: 2015Q3

REPORT INFORMATION
  Report Type: Spontaneous
  Country: US (occurrence: US)
  Receive Date: 20150831
  Receipt Date: 20150831
  Transmission Date: 20151125
  Serious: Yes (Other)
  Sender: FDA-Public Use
  Company Number: US-ELI_LILLY_AND_COMPANY-US200907004012

PATIENT
  Age: 55 Year
  Sex: Female
  Weight: 125.62 kg

DRUGS (8)
  1. CYMBALTA [Suspect]
     Active Substance: DULOXETINE HYDROCHLORIDE
  2. PARACETAMOL [Concomitant]
     Active Substance: ACETAMINOPHEN
  3. ANASTROZOLE. [Concomitant]
     Active Substance: ANASTROZOLE
  4. ALBUTEROL. [Concomitant]
     Active Substance: ALBUTEROL
  5. LYRICA [Concomitant]
     Active Substance: PREGABALIN
     Indication: PAIN
     Dosage: 75 MG, DAILY (1/D)
     Dates: start: 20090424
  6. NOLVADEX [Concomitant]
     Active Substance: TAMOXIFEN CITRATE
  7. BUPROPION. [Concomitant]
     Active Substance: BUPROPION
  8. MAXZIDE [Concomitant]
     Active Substance: HYDROCHLOROTHIAZIDE\TRIAMTERENE
     Indication: HYPERTENSION

REACTIONS (7)
  - Malaise [Unknown]
  - Hot flush [Unknown]
  - Oedema peripheral [Unknown]
  - Arthralgia [Unknown]
  - Weight decreased [Unknown]
  - Anaphylactic reaction [Unknown]
  - Musculoskeletal stiffness [Unknown]

NARRATIVE: CASE EVENT DATE: 20090425
